FAERS Safety Report 9814996 (Version 1)
Quarter: 2014Q1

REPORT INFORMATION
  Report Type: Report from Study
  Country: US (occurrence: US)
  Receive Date: 20140114
  Receipt Date: 20140114
  Transmission Date: 20141002
  Serious: Yes (Other)
  Sender: FDA-Public Use
  Company Number: US-ROCHE-1329735

PATIENT
  Sex: Male

DRUGS (14)
  1. LUCENTIS [Suspect]
     Indication: DIABETIC RETINAL OEDEMA
     Route: 050
     Dates: start: 20111128
  2. LUCENTIS [Suspect]
     Route: 050
     Dates: start: 20100430
  3. AVASTIN [Suspect]
     Indication: PRODUCT USED FOR UNKNOWN INDICATION
     Dosage: OS
     Route: 047
     Dates: start: 20100923
  4. AMLODIPINE [Concomitant]
     Route: 065
     Dates: start: 20111216
  5. ASPIRIN [Concomitant]
     Route: 065
     Dates: start: 20111216
  6. CARVEDILOL [Concomitant]
     Route: 065
     Dates: start: 20111216
  7. GLUCOPHAGE [Concomitant]
     Route: 065
     Dates: start: 20111216
  8. LANTUS [Concomitant]
     Route: 065
     Dates: start: 20111216
  9. NORVASC [Concomitant]
     Route: 065
     Dates: start: 20111216
  10. NOVOLOG [Concomitant]
     Dosage: 100 UNITS AS DIRECTED
     Route: 065
     Dates: start: 20111216
  11. SIMVASTATIN [Concomitant]
     Route: 065
     Dates: start: 20111216
  12. TRIPLEX AD (UNITED STATES) [Concomitant]
     Dosage: 12.7-7.5-15MG AS DIRECTED
     Route: 065
     Dates: start: 20111216
  13. VALSARTAN [Concomitant]
     Route: 065
     Dates: start: 20111216
  14. ZYMAXID [Concomitant]
     Dosage: QID 2 DAY BEFORE; Q2H DAY OF; QID X3 DAYS
     Route: 065

REACTIONS (3)
  - Eye irritation [Unknown]
  - Vitritis [Recovered/Resolved]
  - Visual acuity reduced [Unknown]
